FAERS Safety Report 4603636-8 (Version None)
Quarter: 2005Q1

REPORT INFORMATION
  Report Type: 
  Country: None (occurrence: None)
  Receive Date: 20050308
  Receipt Date: 20050221
  Transmission Date: 20050727
  Serious: Yes (Other)
  Sender: FDA-Public Use
  Company Number: CA-2005-002429

PATIENT
  Age: 66 Year
  Sex: Female

DRUGS (1)
  1. CLIMARA [Suspect]
     Dosage: TRANSDERMAL
     Route: 062
     Dates: start: 20020101, end: 20050101

REACTIONS (1)
  - BREAST CANCER FEMALE [None]
